FAERS Safety Report 5473616-1 (Version None)
Quarter: 2007Q3

REPORT INFORMATION
  Report Type: 
  Country: None (occurrence: None)
  Receive Date: 20070831
  Receipt Date: 20070410
  Transmission Date: 20080115
  Serious: No
  Sender: FDA-Public Use
  Company Number: 239723

PATIENT
  Sex: Male

DRUGS (1)
  1. LUCENTIS [Suspect]
     Dosage: INTRAVITREAL

REACTIONS (1)
  - RHINORRHOEA [None]
